FAERS Safety Report 24702100 (Version 1)
Quarter: 2024Q4

REPORT INFORMATION
  Report Type: Report from Study
  Country: US (occurrence: US)
  Receive Date: 20241205
  Receipt Date: 20241205
  Transmission Date: 20250114
  Serious: Yes (Hospitalization)
  Sender: ROCHE
  Company Number: US-ROCHE-10000140385

PATIENT
  Age: 6 Year
  Sex: Female
  Weight: 26.76 kg

DRUGS (2)
  1. EVRYSDI [Suspect]
     Active Substance: RISDIPLAM
     Indication: Spinal muscular atrophy
     Dosage: 100 ML BOTTLE
     Route: 048
     Dates: start: 20241110
  2. EVRYSDI [Suspect]
     Active Substance: RISDIPLAM
     Dosage: VIA G-TUBE AT 10 PM, 5 MG (6.6 ML)
     Route: 050
     Dates: start: 20241111

REACTIONS (3)
  - Vomiting [Not Recovered/Not Resolved]
  - Dehydration [Not Recovered/Not Resolved]
  - Ventricular extrasystoles [Not Recovered/Not Resolved]

NARRATIVE: CASE EVENT DATE: 20241120
